FAERS Safety Report 6539681-5 (Version None)
Quarter: 2010Q1

REPORT INFORMATION
  Report Type: 
  Country: None (occurrence: None)
  Receive Date: 20100115
  Receipt Date: 20100107
  Transmission Date: 20100710
  Serious: Yes (Other)
  Sender: FDA-Public Use
  Company Number: US-SANOFI-AVENTIS-2010SA001485

PATIENT
  Age: 64 Year
  Sex: Female

DRUGS (5)
  1. LANTUS [Suspect]
     Indication: DIABETES MELLITUS
     Dosage: DOSE:25 UNIT(S)
     Route: 058
  2. OPTICLICK [Suspect]
  3. SIMVASTATIN [Concomitant]
  4. ASPIRIN [Concomitant]
  5. HUMALOG [Concomitant]
     Dosage: WITH MEALS

REACTIONS (1)
  - GLAUCOMA [None]
